FAERS Safety Report 9001915 (Version 2)
Quarter: 2014Q2

REPORT INFORMATION
  Report Type: Report from Study
  Country: CN (occurrence: CN)
  Receive Date: 20130107
  Receipt Date: 20140407
  Transmission Date: 20141212
  Serious: Yes (Hospitalization)
  Sender: FDA-Public Use
  Company Number: CN-ROCHE-1174074

PATIENT
  Sex: Male
  Weight: 60 kg

DRUGS (7)
  1. CELLCEPT [Suspect]
     Indication: RENAL TRANSPLANT
     Route: 048
     Dates: start: 20011227
  2. CELLCEPT [Suspect]
     Dosage: 500 MG IN THE MORNING AND 750 MG IN THE EVENING
     Route: 048
  3. PROGRAF [Suspect]
     Indication: RENAL TRANSPLANT
     Route: 048
     Dates: start: 20011227
  4. PROGRAF [Suspect]
     Route: 048
     Dates: start: 2008
  5. CICLOSPORIN [Concomitant]
     Indication: RENAL TRANSPLANT
     Route: 048
     Dates: end: 2003
  6. CICLOSPORIN A [Concomitant]
     Indication: RENAL TRANSPLANT
     Route: 048
     Dates: start: 2003, end: 2008
  7. PREDNISONE [Concomitant]
     Indication: RENAL TRANSPLANT
     Route: 048
     Dates: start: 20011227, end: 2008

REACTIONS (10)
  - Benign prostatic hyperplasia [Recovering/Resolving]
  - Hypertension [Recovering/Resolving]
  - Pyrexia [Recovered/Resolved]
  - Diarrhoea [Recovered/Resolved]
  - Blood creatinine increased [Recovered/Resolved]
  - Diabetes mellitus [Recovering/Resolving]
  - Dysuria [Recovering/Resolving]
  - Prostatic specific antigen increased [Unknown]
  - Vascular occlusion [Unknown]
  - Constipation [Recovering/Resolving]
